FAERS Safety Report 23369242 (Version 1)
Quarter: 2024Q1

REPORT INFORMATION
  Report Type: Spontaneous
  Country: FR (occurrence: FR)
  Receive Date: 20240105
  Receipt Date: 20240105
  Transmission Date: 20240409
  Serious: Yes (Death, Other)
  Sender: FDA-Public Use
  Company Number: FR-AFSSAPS-PV2023001187

PATIENT
  Age: 88 Year
  Sex: Female

DRUGS (3)
  1. PREDNISOLONE [Suspect]
     Active Substance: PREDNISOLONE
     Indication: Joint injection
     Dosage: UNK
     Route: 014
     Dates: start: 20230607, end: 20230607
  2. LIDOCAINE\NIFEDIPINE [Suspect]
     Active Substance: LIDOCAINE\NIFEDIPINE
     Indication: Joint injection
     Dosage: UNK
     Route: 065
     Dates: start: 20230607, end: 20230607
  3. IOPAMIDOL [Suspect]
     Active Substance: IOPAMIDOL
     Indication: Joint injection
     Dosage: UNK
     Route: 042
     Dates: start: 20230607, end: 20230607

REACTIONS (1)
  - Cardio-respiratory arrest [Fatal]
